FAERS Safety Report 7970967-3 (Version None)
Quarter: 2011Q4

REPORT INFORMATION
  Report Type: 
  Country: None (occurrence: None)
  Receive Date: 20111212
  Receipt Date: 20111205
  Transmission Date: 20120403
  Serious: Yes (Death, Hospitalization)
  Sender: FDA-Public Use
  Company Number: GB-BRISTOL-MYERS SQUIBB COMPANY-16221889

PATIENT
  Age: 59 Year
  Sex: Male
  Weight: 64 kg

DRUGS (20)
  1. CALCIUM [Concomitant]
     Dosage: 1DF = 600 TABS
     Route: 048
  2. NORCO [Concomitant]
  3. CODEINE SULFATE [Concomitant]
  4. ERLOTINIB HYDROCHLORIDE [Suspect]
     Indication: NON-SMALL CELL LUNG CANCER
     Route: 048
     Dates: start: 20110618, end: 20111105
  5. ENABLEX [Concomitant]
     Route: 048
  6. ONDANSETRON [Concomitant]
     Indication: VOMITING
     Route: 048
  7. PRAVACHOL [Concomitant]
     Indication: BLOOD CHOLESTEROL
     Dosage: 1 TAB
     Route: 048
  8. ACETAMINOPHEN [Concomitant]
     Route: 048
  9. DASATINIB [Suspect]
     Indication: NON-SMALL CELL LUNG CANCER
     Dosage: 20MG ALSO GIVEN, 1 TAB 1HR BEFORE OR 2 HRS AFTER MEALS
     Route: 048
     Dates: start: 20110618, end: 20111105
  10. IMODIUM [Concomitant]
     Indication: DIARRHOEA
     Route: 048
  11. SENOKOT [Concomitant]
  12. ASPIRIN [Concomitant]
  13. VESICARE [Concomitant]
     Route: 048
  14. NEURONTIN [Concomitant]
  15. ONDANSETRON [Concomitant]
     Indication: NAUSEA
     Route: 048
  16. CLINDAMYCIN HCL [Concomitant]
     Indication: RASH
     Dosage: 1DF = 1 CREAM
  17. MULTI-VITAMIN [Concomitant]
     Indication: SUPPLEMENTATION THERAPY
     Dosage: 1DF = 1 TAB
     Route: 048
  18. LORTAB [Concomitant]
     Dosage: STRENGTH: 7.5-500 MG; 1DF= 1-2 TABS AS NEEDED.
     Route: 048
  19. OXYCONTIN [Concomitant]
     Dosage: STRENGTH: 10 MG TABLET.
     Route: 048
  20. SENNA [Concomitant]
     Route: 048

REACTIONS (12)
  - GASTROINTESTINAL HAEMORRHAGE [None]
  - PLEURAL EFFUSION [None]
  - HAEMATOCRIT DECREASED [None]
  - FIBROSIS [None]
  - RED BLOOD CELL COUNT DECREASED [None]
  - HYPOVOLAEMIC SHOCK [None]
  - NERVOUS SYSTEM DISORDER [None]
  - COLITIS ISCHAEMIC [None]
  - HAEMOGLOBIN DECREASED [None]
  - ATROPHY [None]
  - CARDIO-RESPIRATORY ARREST [None]
  - BLOOD CALCIUM DECREASED [None]
